FAERS Safety Report 17577111 (Version 1)
Quarter: 2020Q1

REPORT INFORMATION
  Report Type: Spontaneous
  Country: US (occurrence: US)
  Receive Date: 20200324
  Receipt Date: 20200324
  Transmission Date: 20200409
  Serious: Yes (Hospitalization, Other)
  Sender: FDA-Public Use
  Company Number: US-GILEAD-2020-0456249

PATIENT
  Sex: Male
  Weight: 82.7 kg

DRUGS (18)
  1. INSULIN GLARGINE [Concomitant]
     Active Substance: INSULIN GLARGINE
  2. YESCARTA [Suspect]
     Active Substance: AXICABTAGENE CILOLEUCEL
     Indication: DIFFUSE LARGE B-CELL LYMPHOMA REFRACTORY
     Dosage: UNK
     Route: 042
     Dates: start: 20190805, end: 20190805
  3. ENOXAPARIN [Concomitant]
     Active Substance: ENOXAPARIN
  4. INSULIN LISPRO [Concomitant]
     Active Substance: INSULIN LISPRO
  5. MELATONIN [Concomitant]
     Active Substance: MELATONIN
  6. PANTOPRAZOLE [Concomitant]
     Active Substance: PANTOPRAZOLE
  7. PAROXETINE. [Concomitant]
     Active Substance: PAROXETINE
  8. URSODIOL. [Concomitant]
     Active Substance: URSODIOL
  9. ACYCLOVIR [ACICLOVIR] [Concomitant]
     Active Substance: ACYCLOVIR
  10. AMLODIPINE [Concomitant]
     Active Substance: AMLODIPINE BESYLATE
  11. CHLORTHALIDONE. [Concomitant]
     Active Substance: CHLORTHALIDONE
  12. OXYCODONE [Concomitant]
     Active Substance: OXYCODONE
  13. SPIRONOLACTONE. [Concomitant]
     Active Substance: SPIRONOLACTONE
  14. LIDOCAINE. [Concomitant]
     Active Substance: LIDOCAINE
  15. GABAPENTIN. [Concomitant]
     Active Substance: GABAPENTIN
  16. GLUCAGON. [Concomitant]
     Active Substance: GLUCAGON
  17. LEVETIRACETAM. [Concomitant]
     Active Substance: LEVETIRACETAM
  18. PENTAMIDINE [Concomitant]
     Active Substance: PENTAMIDINE

REACTIONS (3)
  - Seizure [Unknown]
  - Pyrexia [Recovered/Resolved]
  - Hypotension [Recovered/Resolved]

NARRATIVE: CASE EVENT DATE: 20191014
